FAERS Safety Report 5044498-7 (Version None)
Quarter: 2006Q3

REPORT INFORMATION
  Report Type: 
  Country: None (occurrence: None)
  Receive Date: 20060706
  Receipt Date: 20060626
  Transmission Date: 20061208
  Serious: Yes (Death)
  Sender: FDA-Public Use
  Company Number: 2005/350

PATIENT
  Age: 72 Year
  Sex: Female

DRUGS (4)
  1. AMOXICILLINE RPG [Suspect]
     Indication: DYSPNOEA
     Dosage: 1500MG PER DAY
     Route: 065
     Dates: start: 20051125
  2. FUROSEMIDE [Suspect]
     Indication: DYSPNOEA
     Dosage: 40MG PER DAY
     Route: 065
     Dates: start: 20051125
  3. HELICIDINE [Suspect]
     Indication: DYSPNOEA
     Dosage: 3SP PER DAY
     Route: 048
     Dates: start: 20051125
  4. VASTAREL [Concomitant]
     Route: 065

REACTIONS (4)
  - ANGIOPATHY [None]
  - BLOOD PRESSURE DECREASED [None]
  - CARDIAC FAILURE [None]
  - DYSPNOEA [None]
